FAERS Safety Report 10510570 (Version 1)
Quarter: 2014Q3

REPORT INFORMATION
  Report Type: Spontaneous
  Country: US (occurrence: None)
  Receive Date: 20140915
  Receipt Date: 20140915
  Transmission Date: 20150326
  Serious: Yes (Other)
  Sender: FDA-Public Use
  Company Number: JPI-P-034311

PATIENT
  Age: 24 Year
  Sex: Female
  Weight: 100 kg

DRUGS (5)
  1. LISDEXAMFETAMINE MESILATE (LISDEXAMFETAMINE MESILATE) [Concomitant]
  2. XYREM [Suspect]
     Active Substance: SODIUM OXYBATE
     Indication: SOMNOLENCE
     Route: 048
     Dates: start: 20130518, end: 2013
  3. XYREM [Suspect]
     Active Substance: SODIUM OXYBATE
     Indication: NARCOLEPSY
     Route: 048
     Dates: start: 20130518, end: 2013
  4. FEXOFENADINE HYDROCHLORIDE (FEXOFENADINE HYDROCHLORIDE) [Concomitant]
     Active Substance: FEXOFENADINE HYDROCHLORIDE
  5. LEVONORGESTREL (LEVONORGESTREL) [Concomitant]

REACTIONS (1)
  - Depression [None]

NARRATIVE: CASE EVENT DATE: 201307
